FAERS Safety Report 6819382-6 (Version None)
Quarter: 2010Q3

REPORT INFORMATION
  Report Type: 
  Country: None (occurrence: None)
  Receive Date: 20100707
  Receipt Date: 20100625
  Transmission Date: 20110219
  Serious: Yes (Other)
  Sender: FDA-Public Use
  Company Number: NL-PFIZER INC-2010079930

PATIENT
  Age: 77 Year
  Sex: Female

DRUGS (5)
  1. ARTHROTEC [Suspect]
     Dosage: 75 MG, UNK
  2. NITRAZEPAM [Concomitant]
     Dosage: 5 MG, UNK
  3. MIRTAZAPINE [Concomitant]
     Dosage: 1350 MG, UNK
  4. NAPROXEN [Concomitant]
     Dosage: 1000 MG, UNK
  5. TRAMADOL [Concomitant]
     Dosage: UNK

REACTIONS (10)
  - BACK PAIN [None]
  - BALANCE DISORDER [None]
  - CONFUSIONAL STATE [None]
  - CONTUSION [None]
  - DIZZINESS [None]
  - FALL [None]
  - HYPERHIDROSIS [None]
  - OEDEMA PERIPHERAL [None]
  - PSYCHOMOTOR SKILLS IMPAIRED [None]
  - SUICIDAL IDEATION [None]
